FAERS Safety Report 9257512 (Version 1)
Quarter: 2013Q2

REPORT INFORMATION
  Report Type: Spontaneous
  Country: US (occurrence: None)
  Receive Date: 20130424
  Receipt Date: 20130424
  Transmission Date: 20140414
  Serious: No
  Sender: FDA-Public Use
  Company Number: None

PATIENT
  Age: 59 Year
  Sex: Male
  Weight: 102.1 kg

DRUGS (1)
  1. AMOXICILLIN/CLAVULANATE [Suspect]
     Indication: PAIN
     Route: 048

REACTIONS (1)
  - Rash maculo-papular [None]
